FAERS Safety Report 15627847 (Version 2)
Quarter: 2019Q1

REPORT INFORMATION
  Report Type: Spontaneous
  Country: US (occurrence: US)
  Receive Date: 20181116
  Receipt Date: 20190205
  Transmission Date: 20190417
  Serious: Yes (Hospitalization, Other)
  Sender: FDA-Public Use
  Company Number: US-009507513-1811USA006575

PATIENT
  Age: 51 Year
  Sex: Female

DRUGS (1)
  1. SYLATRON [Suspect]
     Active Substance: PEGINTERFERON ALFA-2B
     Dosage: STRENGTH: 300 MCG

REACTIONS (4)
  - Procedural pneumothorax [Unknown]
  - Inappropriate schedule of product administration [Unknown]
  - Pneumothorax [Unknown]
  - Headache [Recovered/Resolved]

NARRATIVE: CASE EVENT DATE: 20170908
